FAERS Safety Report 4689954-6 (Version None)
Quarter: 2005Q2

REPORT INFORMATION
  Report Type: 
  Country: None (occurrence: None)
  Receive Date: 20050608
  Receipt Date: 20040804
  Transmission Date: 20051028
  Serious: Yes (Other)
  Sender: FDA-Public Use
  Company Number: 351669

PATIENT

DRUGS (2)
  1. ISOTRETINOIN [Suspect]
     Indication: ACNE
     Dosage: 40 MG DAILY ORAL
     Route: 048
     Dates: start: 20031015, end: 20031106
  2. GYNERA (ETHINYL ESTRADIOL/GESTODENE) [Concomitant]

REACTIONS (1)
  - ABORTION INDUCED [None]
